FAERS Safety Report 10494702 (Version 1)
Quarter: 2014Q4

REPORT INFORMATION
  Report Type: Spontaneous
  Country: US (occurrence: US)
  Receive Date: 20141003
  Receipt Date: 20141003
  Transmission Date: 20150528
  Serious: Yes (Other)
  Sender: FDA-Public Use
  Company Number: US-ELI_LILLY_AND_COMPANY-US201409009314

PATIENT
  Sex: Female

DRUGS (7)
  1. NOVOLOG [Concomitant]
     Active Substance: INSULIN ASPART
     Dosage: 7 U, EACH EVENING
  2. LABETALOL HCL [Concomitant]
     Active Substance: LABETALOL HYDROCHLORIDE
     Dosage: 100 MG, BID
  3. HUMULIN N [Suspect]
     Active Substance: INSULIN HUMAN
     Indication: DIABETES MELLITUS
     Dosage: 30 U, EACH MORNING
     Route: 065
     Dates: start: 20140618
  4. XOPENEX HFA [Concomitant]
     Active Substance: LEVALBUTEROL TARTRATE
     Dosage: 2 DF, OTHER
  5. ALBUTEROL                          /00139501/ [Concomitant]
     Active Substance: ALBUTEROL
  6. HUMULIN N [Suspect]
     Active Substance: INSULIN HUMAN
     Dosage: 19 U, EACH EVENING
     Route: 065
     Dates: start: 20140618
  7. NOVOLOG [Concomitant]
     Active Substance: INSULIN ASPART
     Dosage: 14 U, EACH MORNING
     Dates: start: 201406

REACTIONS (5)
  - Blood glucose decreased [Not Recovered/Not Resolved]
  - Maternal exposure during pregnancy [Unknown]
  - Incorrect product storage [Unknown]
  - Blood glucose increased [Unknown]
  - High risk pregnancy [Not Recovered/Not Resolved]
